FAERS Safety Report 5150432-1 (Version None)
Quarter: 2006Q4

REPORT INFORMATION
  Report Type: 
  Country: None (occurrence: None)
  Receive Date: 20061114
  Receipt Date: 20061030
  Transmission Date: 20070319
  Serious: Yes (Death, Hospitalization)
  Sender: FDA-Public Use
  Company Number: FR-ROCHE-469232

PATIENT
  Age: 83 Year
  Sex: Female

DRUGS (4)
  1. ROCEPHIN [Suspect]
     Indication: DRUG USE FOR UNKNOWN INDICATION
     Route: 042
     Dates: start: 20060926, end: 20061001
  2. NEXIUM [Suspect]
     Indication: DRUG USE FOR UNKNOWN INDICATION
     Route: 048
     Dates: start: 20061001, end: 20061011
  3. OFLOCET [Suspect]
     Indication: DRUG USE FOR UNKNOWN INDICATION
     Route: 042
     Dates: start: 20060926, end: 20061001
  4. DAFALGAN [Suspect]
     Indication: DRUG USE FOR UNKNOWN INDICATION
     Dosage: PATIENT RECEIVED A TOTAL DOSE OF 10 GRAMS.
     Route: 048
     Dates: start: 20060924, end: 20060924

REACTIONS (3)
  - DEATH [None]
  - DERMATITIS BULLOUS [None]
  - TOXIC EPIDERMAL NECROLYSIS [None]
